FAERS Safety Report 4669501-5 (Version None)
Quarter: 2005Q2

REPORT INFORMATION
  Report Type: 
  Country: None (occurrence: None)
  Receive Date: 20050523
  Receipt Date: 20050322
  Transmission Date: 20051028
  Serious: Yes (Life-Threatening)
  Sender: FDA-Public Use
  Company Number: US-ROCHE-399670

PATIENT
  Age: 43 Year
  Sex: Male
  Weight: 86.2 kg

DRUGS (6)
  1. TAMIFLU [Suspect]
     Dosage: TAKEN ONCE
     Route: 048
     Dates: start: 20050125, end: 20050125
  2. RANITIDINE [Concomitant]
     Route: 048
  3. ASPIRIN [Concomitant]
     Route: 048
  4. LIPITOR [Concomitant]
     Route: 048
  5. CLARITIN [Concomitant]
     Route: 048
  6. FLONASE [Concomitant]
     Route: 045

REACTIONS (3)
  - PRURITUS [None]
  - SWELLING FACE [None]
  - URTICARIA [None]
